FAERS Safety Report 8949853 (Version 1)
Quarter: 2012Q4

REPORT INFORMATION
  Report Type: Report from Study
  Country: ES (occurrence: ES)
  Receive Date: 20121206
  Receipt Date: 20121206
  Transmission Date: 20130627
  Serious: Yes (Hospitalization)
  Sender: FDA-Public Use
  Company Number: ES-ROCHE-1085910

PATIENT
  Age: 68 Year
  Sex: Female
  Weight: 59 kg

DRUGS (10)
  1. RIBAVIRIN [Suspect]
     Indication: CHRONIC HEPATITIS C
     Route: 048
     Dates: start: 20120419, end: 20120626
  2. BI 207127 [Suspect]
     Indication: CHRONIC HEPATITIS C
     Route: 048
     Dates: start: 20120419, end: 20120626
  3. BI 201335 [Suspect]
     Indication: CHRONIC HEPATITIS C
     Route: 048
     Dates: start: 20120419, end: 20120626
  4. ENALAPRIL [Concomitant]
     Indication: HYPERTENSION
     Route: 048
     Dates: start: 201004
  5. HIDROCHLOROTHIAZIDE [Concomitant]
     Indication: HYPERTENSION
     Route: 048
     Dates: start: 2010
  6. OMEPRAZOL [Concomitant]
     Route: 048
     Dates: start: 20120426
  7. METOCLOPRAMIDA [Concomitant]
     Indication: VOMITING
     Dosage: Strenght 1 mg/ml
     Route: 048
     Dates: start: 20120426
  8. ERYTHROPOIETIN [Concomitant]
     Indication: ANAEMIA
     Dosage: dose 40000 U
     Route: 065
     Dates: start: 20120517
  9. DUPHALAC [Concomitant]
     Dosage: 10 cc3
     Route: 048
  10. AMLODIPINE [Concomitant]
     Indication: HYPERTENSION
     Route: 065

REACTIONS (3)
  - Dehydration [Recovered/Resolved]
  - Gastritis [Recovered/Resolved]
  - Prerenal failure [Recovered/Resolved]
